FAERS Safety Report 23733794 (Version 1)
Quarter: 2024Q2

REPORT INFORMATION
  Report Type: Spontaneous
  Country: RU (occurrence: RU)
  Receive Date: 20240412
  Receipt Date: 20240412
  Transmission Date: 20240716
  Serious: Yes (Hospitalization)
  Sender: FDA-Public Use
  Company Number: RU-ORGANON-O2404RUS001083

PATIENT
  Age: 66 Year
  Sex: Female

DRUGS (3)
  1. DIPROSPAN [Suspect]
     Active Substance: BETAMETHASONE DIPROPIONATE\BETAMETHASONE SODIUM PHOSPHATE
     Indication: Arthritis
     Dosage: UNK
     Route: 065
     Dates: start: 202310
  2. DIPROSPAN [Suspect]
     Active Substance: BETAMETHASONE DIPROPIONATE\BETAMETHASONE SODIUM PHOSPHATE
     Indication: Synovitis
     Dosage: UNK
     Route: 065
     Dates: start: 20240106
  3. DIPROSPAN [Suspect]
     Active Substance: BETAMETHASONE DIPROPIONATE\BETAMETHASONE SODIUM PHOSPHATE
     Indication: Periarthritis
     Dosage: UNK
     Route: 065
     Dates: start: 20240214, end: 20240301

REACTIONS (2)
  - Pancreatitis acute [Unknown]
  - Gastritis erosive [Unknown]

NARRATIVE: CASE EVENT DATE: 20240301
